FAERS Safety Report 11254728 (Version 1)
Quarter: 2015Q3

REPORT INFORMATION
  Report Type: Spontaneous
  Country: IT (occurrence: IT)
  Receive Date: 20150709
  Receipt Date: 20150709
  Transmission Date: 20151125
  Serious: Yes (Other)
  Sender: FDA-Public Use
  Company Number: IT-PFIZER INC-2015223742

PATIENT
  Age: 26 Year
  Sex: Male

DRUGS (2)
  1. XANAX [Suspect]
     Active Substance: ALPRAZOLAM
     Dosage: 1 DF, TOTAL
     Route: 048
     Dates: start: 20150516, end: 20150516
  2. TAVOR [Suspect]
     Active Substance: LORAZEPAM
     Dosage: 10 DF, TOTAL
     Route: 048
     Dates: start: 20150516, end: 20150516

REACTIONS (3)
  - Overdose [Unknown]
  - Asthenia [Recovered/Resolved]
  - Nausea [Recovered/Resolved]

NARRATIVE: CASE EVENT DATE: 20150516
